FAERS Safety Report 8614206-9 (Version None)
Quarter: 2012Q3

REPORT INFORMATION
  Report Type: 
  Country: None (occurrence: None)
  Receive Date: 20120823
  Receipt Date: 20120813
  Transmission Date: 20120928
  Serious: Yes (Other)
  Sender: FDA-Public Use
  Company Number: IE-JNJFOC-20120806813

PATIENT
  Sex: Male

DRUGS (20)
  1. CHLORPROMAZINE HCL [Concomitant]
     Route: 065
  2. RISPERDAL [Suspect]
     Dosage: HIGH DOSE
     Route: 048
     Dates: start: 20100624
  3. DIAMICRON MR [Concomitant]
     Route: 065
  4. PROPRANOLOL [Concomitant]
     Route: 065
  5. CHLORPROMAZINE HCL [Concomitant]
     Route: 065
  6. JANUVIA [Concomitant]
     Route: 065
  7. GLUCOPHAGE [Concomitant]
     Route: 065
  8. SEROQUEL [Concomitant]
     Route: 065
  9. LACTULOSE [Concomitant]
     Route: 065
  10. ASPIRIN [Concomitant]
     Route: 065
  11. ASPIRIN [Concomitant]
     Route: 065
  12. RISPERDAL [Suspect]
     Indication: PRODUCT USED FOR UNKNOWN INDICATION
     Route: 048
  13. GLUCOSAMINE [Concomitant]
     Route: 065
  14. RISPERDAL [Suspect]
     Route: 048
     Dates: start: 20101005
  15. AN UNKNOWN MEDICATION [Concomitant]
     Route: 065
  16. METFORMIN [Concomitant]
     Route: 065
  17. QUETIAPINE [Concomitant]
     Route: 065
  18. MOVIPREP [Concomitant]
     Route: 065
  19. SITAGLIPTIN [Concomitant]
     Route: 065
  20. GLICLAZIDE [Concomitant]
     Route: 065

REACTIONS (8)
  - INCONTINENCE [None]
  - DYSSTASIA [None]
  - ABASIA [None]
  - APHASIA [None]
  - HYPERHIDROSIS [None]
  - FOAMING AT MOUTH [None]
  - HYPERSOMNIA [None]
  - PARKINSON'S DISEASE [None]
